FAERS Safety Report 4403034-6 (Version None)
Quarter: 2004Q3

REPORT INFORMATION
  Report Type: 
  Country: None (occurrence: None)
  Receive Date: 20040721
  Receipt Date: 20040105
  Transmission Date: 20050211
  Serious: No
  Sender: FDA-Public Use
  Company Number: US-GLAXOSMITHKLINE-A0491308A

PATIENT
  Age: 58 Year
  Sex: Female

DRUGS (8)
  1. IMITREX [Suspect]
     Indication: MIGRAINE
     Dosage: 100MG AS REQUIRED
     Route: 048
     Dates: start: 19940701
  2. OXYCONTIN [Concomitant]
  3. PROVIGIL [Concomitant]
  4. LOPID [Concomitant]
  5. EFFEXOR [Concomitant]
  6. ALPRAZOLAM [Concomitant]
  7. PROTONIX [Concomitant]
  8. BEXTRA [Concomitant]

REACTIONS (1)
  - MEDIASTINAL DISORDER [None]
